FAERS Safety Report 7010206-3 (Version None)
Quarter: 2010Q3

REPORT INFORMATION
  Report Type: 
  Country: None (occurrence: None)
  Receive Date: 20100923
  Receipt Date: 20100218
  Transmission Date: 20110219
  Serious: No
  Sender: FDA-Public Use
  Company Number: US-BAUSCH-2010BL000971

PATIENT
  Sex: Female

DRUGS (4)
  1. ERYTHROCIN 1% [Suspect]
     Indication: OCULAR HYPERAEMIA
     Route: 047
     Dates: start: 20100216, end: 20100216
  2. ERYTHROCIN 1% [Suspect]
     Route: 047
     Dates: start: 20100217, end: 20100217
  3. ERYTHROCIN 1% [Suspect]
     Route: 047
     Dates: start: 20100218, end: 20100218
  4. AZITHROMYCIN [Concomitant]

REACTIONS (3)
  - MEDICATION RESIDUE [None]
  - OCULAR DISCOMFORT [None]
  - SENSATION OF FOREIGN BODY [None]
